FAERS Safety Report 5521296-9 (Version None)
Quarter: 2007Q4

REPORT INFORMATION
  Report Type: 
  Country: None (occurrence: None)
  Receive Date: 20071119
  Receipt Date: 20061108
  Transmission Date: 20080405
  Serious: No
  Sender: FDA-Public Use
  Company Number: US-BOEHRINGER INGELHEIM PHARMACEUTICALS, INC.-2007-BP-01331BP

PATIENT
  Age: 53 Year
  Sex: Female

DRUGS (2)
  1. ZANTAC 150 [Suspect]
     Indication: DYSPEPSIA
     Route: 048
     Dates: start: 20061104, end: 20061108
  2. VITAMINS NOS [Concomitant]
     Indication: MEDICAL DIET
     Dosage: UNSPECIFIED ONCE DAILY
     Route: 048

REACTIONS (1)
  - HEADACHE [None]
